FAERS Safety Report 7385319-7 (Version None)
Quarter: 2011Q1

REPORT INFORMATION
  Report Type: 
  Country: None (occurrence: None)
  Receive Date: 20110330
  Receipt Date: 20100716
  Transmission Date: 20110831
  Serious: No
  Sender: FDA-Public Use
  Company Number: US-MYLANLABS-2010S1012959

PATIENT
  Sex: Female

DRUGS (8)
  1. DIAZEPAM [Concomitant]
     Route: 048
  2. LEVOTHYROXINE SODIUM [Concomitant]
     Indication: THYROID DISORDER
     Route: 048
  3. LUNESTA [Concomitant]
     Indication: INSOMNIA
     Route: 048
  4. PRAVASTATIN [Concomitant]
     Route: 048
  5. EMSAM [Suspect]
     Indication: DEPRESSION
     Dosage: CHANGED Q24H
     Route: 062
     Dates: start: 20100101
  6. ASPIRIN [Concomitant]
     Route: 048
  7. FENOFIBRATE [Concomitant]
     Route: 048
  8. LISINOPRIL [Concomitant]
     Route: 048

REACTIONS (1)
  - HYPERHIDROSIS [None]
